FAERS Safety Report 7456327-2 (Version None)
Quarter: 2011Q2

REPORT INFORMATION
  Report Type: 
  Country: None (occurrence: None)
  Receive Date: 20110503
  Receipt Date: 20110118
  Transmission Date: 20111010
  Serious: Yes (Hospitalization)
  Sender: FDA-Public Use
  Company Number: US-BAYER-201022325NA

PATIENT
  Age: 44 Year
  Sex: Female
  Weight: 56.689 kg

DRUGS (9)
  1. IBUPROFEN [Concomitant]
     Dosage: UNK
     Dates: start: 20010101
  2. YAZ [Suspect]
     Dosage: UNK UNK, QD
     Route: 048
     Dates: start: 20070801, end: 20070901
  3. NAPROXEN (ALEVE) [Concomitant]
     Dosage: UNK
     Dates: start: 20010101
  4. ROSARUM [Concomitant]
  5. NSAID'S [Concomitant]
  6. GABAPENTIN [Concomitant]
     Dosage: UNK
     Dates: start: 20040101, end: 20080101
  7. SYNTHROID [Concomitant]
     Dosage: UNK
     Dates: start: 20010101
  8. ULTRAM [Concomitant]
  9. XANAX [Concomitant]

REACTIONS (4)
  - PULMONARY EMBOLISM [None]
  - FATIGUE [None]
  - MUSCULOSKELETAL PAIN [None]
  - HYPOTENSION [None]
